FAERS Safety Report 14578272 (Version 5)
Quarter: 2018Q2

REPORT INFORMATION
  Report Type: Report from Study
  Country: DE (occurrence: DE)
  Receive Date: 20180227
  Receipt Date: 20180607
  Transmission Date: 20180711
  Serious: Yes (Death, Hospitalization)
  Sender: FDA-Public Use
  Company Number: DE-ROCHE-2073987

PATIENT
  Age: 76 Year
  Sex: Male
  Weight: 67.7 kg

DRUGS (18)
  1. CLEXANE [Concomitant]
     Active Substance: ENOXAPARIN SODIUM
     Indication: PROPHYLAXIS
     Route: 065
     Dates: start: 20180212, end: 20180219
  2. ATEZOLIZUMAB. [Suspect]
     Active Substance: ATEZOLIZUMAB
     Indication: COLORECTAL CANCER METASTATIC
     Dosage: ON 07/FEB/2018, HE RECEIVED MOST RECENT DOSE OF ATEZOLIZUMAB 840MG.
     Route: 042
     Dates: start: 20180117
  3. COBIMETINIB. [Suspect]
     Active Substance: COBIMETINIB
     Indication: COLORECTAL CANCER METASTATIC
     Dosage: ON 11/FEB/2018, HE RECEIVED MOST RECENT DOSE OF COBIMETINIB 40MG
     Route: 048
     Dates: start: 20180117
  4. METOCLOPRAMIDE. [Concomitant]
     Active Substance: METOCLOPRAMIDE
     Indication: NAUSEA
     Route: 065
     Dates: start: 20170912, end: 20180130
  5. NOVALGIN (METAMIZOLE SODIUM) [Concomitant]
     Active Substance: METAMIZOLE SODIUM
     Route: 065
     Dates: start: 20170115
  6. METOCLOPRAMIDE. [Concomitant]
     Active Substance: METOCLOPRAMIDE
     Indication: VOMITING
     Route: 065
     Dates: start: 20180131
  7. TARGIN [Concomitant]
     Active Substance: NALOXONE HYDROCHLORIDE\OXYCODONE HYDROCHLORIDE
     Route: 065
     Dates: start: 20170915
  8. MELPERON [Concomitant]
     Active Substance: MELPERONE
     Route: 065
     Dates: start: 20180213
  9. LACTULOSE. [Concomitant]
     Active Substance: LACTULOSE
     Route: 065
     Dates: start: 20170915
  10. PANTOZOL [Concomitant]
     Active Substance: PANTOPRAZOLE SODIUM
     Route: 065
     Dates: start: 201707
  11. TARGIN [Concomitant]
     Active Substance: NALOXONE HYDROCHLORIDE\OXYCODONE HYDROCHLORIDE
     Route: 065
     Dates: start: 20171114
  12. L THYROXINE [Concomitant]
     Active Substance: LEVOTHYROXINE SODIUM
     Route: 065
     Dates: start: 2011
  13. METAMIZOL [Concomitant]
     Active Substance: METAMIZOLE SODIUM
     Indication: ENTEROCOLITIS
     Route: 065
     Dates: start: 201711
  14. VOMEX A [Concomitant]
     Active Substance: DIMENHYDRINATE
     Route: 065
     Dates: start: 201707
  15. DICLOFENAC [Concomitant]
     Active Substance: DICLOFENAC
     Route: 065
     Dates: start: 20170805, end: 20180130
  16. NOVALGIN (METAMIZOLE SODIUM) [Concomitant]
     Active Substance: METAMIZOLE SODIUM
     Route: 065
     Dates: start: 20171031, end: 20180115
  17. OXYGESIC AKUT [Concomitant]
     Active Substance: OXYCODONE
     Route: 065
     Dates: start: 20180131
  18. GRANISETRON [Concomitant]
     Active Substance: GRANISETRON
     Route: 065

REACTIONS (3)
  - Urinary tract infection [Fatal]
  - Pneumonia [Fatal]
  - Dehydration [Recovered/Resolved]

NARRATIVE: CASE EVENT DATE: 20180212
